FAERS Safety Report 18570513 (Version 1)
Quarter: 2020Q4

REPORT INFORMATION
  Report Type: Spontaneous
  Country: US (occurrence: US)
  Receive Date: 20201202
  Receipt Date: 20201202
  Transmission Date: 20210114
  Serious: Yes (Hospitalization, Other)
  Sender: FDA-Public Use
  Company Number: US-GILEAD-2020-0506266

PATIENT
  Age: 58 Year
  Sex: Female

DRUGS (38)
  1. LORAZEPAM. [Concomitant]
     Active Substance: LORAZEPAM
     Dosage: UNK
     Dates: start: 20201106, end: 20201117
  2. PANTOPRAZOLE [Concomitant]
     Active Substance: PANTOPRAZOLE
     Dosage: UNK
     Dates: start: 20201105, end: 20201117
  3. LACTATED RINGERS SOLUTION [Concomitant]
     Active Substance: CALCIUM CHLORIDE\POTASSIUM CHLORIDE\SODIUM CHLORIDE\SODIUM LACTATE
     Dosage: UNK
     Dates: start: 20201104
  4. NYSTATIN. [Concomitant]
     Active Substance: NYSTATIN
     Dosage: UNK
     Dates: start: 20201106, end: 20201106
  5. PROCHLORPERAZINE. [Concomitant]
     Active Substance: PROCHLORPERAZINE
     Dosage: UNK
     Dates: start: 20201104, end: 20201110
  6. MAGNESIUM SULFATE. [Concomitant]
     Active Substance: MAGNESIUM SULFATE
     Dosage: UNK
     Dates: start: 20201105, end: 20201110
  7. BENZOCAINE;CETYLPYRIDINIUM CHLORIDE [Concomitant]
     Dosage: UNK
     Dates: start: 20201109, end: 20201117
  8. YESCARTA [Suspect]
     Active Substance: AXICABTAGENE CILOLEUCEL
     Indication: DIFFUSE LARGE B-CELL LYMPHOMA RECURRENT
     Dosage: 68 ML, ONCE
     Route: 042
     Dates: start: 20201103, end: 20201103
  9. TOCILIZUMAB. [Concomitant]
     Active Substance: TOCILIZUMAB
     Dosage: UNK
     Dates: start: 20201107, end: 20201107
  10. OXYCODONE [Concomitant]
     Active Substance: OXYCODONE
     Dosage: UNK
     Dates: start: 20201104, end: 20201110
  11. POTASSIUM PHOSPHATES [Concomitant]
     Active Substance: POTASSIUM PHOSPHATE, DIBASIC\POTASSIUM PHOSPHATE, MONOBASIC
     Dosage: UNK
     Dates: start: 20201105, end: 20201110
  12. VANCOMYCIN [Concomitant]
     Active Substance: VANCOMYCIN
     Dosage: UNK
     Dates: start: 20201109, end: 20201110
  13. FLUDARABINE [Concomitant]
     Active Substance: FLUDARABINE PHOSPHATE
     Indication: BONE MARROW CONDITIONING REGIMEN
     Dosage: UNK
     Dates: end: 20201031
  14. CYCLOPHOSPHAMIDE. [Concomitant]
     Active Substance: CYCLOPHOSPHAMIDE
     Indication: BONE MARROW CONDITIONING REGIMEN
     Dosage: UNK
     Dates: end: 20201031
  15. NACL [Concomitant]
     Active Substance: SODIUM CHLORIDE
  16. VALACYCLOVIR HCL [Concomitant]
     Active Substance: VALACYCLOVIR HYDROCHLORIDE
     Dosage: UNK
     Dates: start: 20201103
  17. ONDANSETRON [Concomitant]
     Active Substance: ONDANSETRON
     Dosage: UNK
     Dates: start: 20201104, end: 20201117
  18. ALLOPURINOL. [Concomitant]
     Active Substance: ALLOPURINOL
     Dosage: UNK
     Dates: start: 20201104
  19. ALUMINIUM HYDROXIDE;MAGNESIUM HYDROXIDE;SIMETICONE [Concomitant]
     Active Substance: ALUMINUM HYDROXIDE\DIMETHICONE\MAGNESIUM HYDROXIDE
     Dosage: UNK
     Dates: start: 20201104, end: 20201117
  20. OMEPRAZOLE. [Concomitant]
     Active Substance: OMEPRAZOLE
     Dosage: UNK
     Dates: start: 20200623
  21. LEVOFLOXACIN. [Concomitant]
     Active Substance: LEVOFLOXACIN
     Dosage: UNK
     Dates: start: 20201104
  22. CEFEPIME [Concomitant]
     Active Substance: CEFEPIME HYDROCHLORIDE
     Dosage: UNK
     Dates: start: 20201104, end: 20201111
  23. TAMSULOSIN [Concomitant]
     Active Substance: TAMSULOSIN
     Dosage: UNK
     Dates: start: 20201110
  24. ALTEPLASE. [Concomitant]
     Active Substance: ALTEPLASE
     Dosage: UNK
     Dates: start: 20201104, end: 20201117
  25. SERTRALINE [Concomitant]
     Active Substance: SERTRALINE HYDROCHLORIDE
     Dosage: UNK
     Dates: start: 20200707
  26. MEPERIDINE [PETHIDINE] [Concomitant]
     Active Substance: MEPERIDINE
     Dosage: UNK
     Dates: start: 20201105, end: 20201105
  27. METHYLPREDNISOLONE SODIUM SUCCINATE. [Concomitant]
     Active Substance: METHYLPREDNISOLONE SODIUM SUCCINATE
     Dosage: UNK
     Dates: start: 20201110, end: 20201116
  28. SUCRALFATE. [Concomitant]
     Active Substance: SUCRALFATE
     Dosage: UNK
     Dates: start: 20201104
  29. ACETAMINOPHEN. [Concomitant]
     Active Substance: ACETAMINOPHEN
     Dosage: UNK
     Dates: start: 20201104, end: 20201117
  30. LOPERAMIDE [Concomitant]
     Active Substance: LOPERAMIDE
     Dosage: UNK
     Dates: start: 20201104
  31. DIPHENHYDRAMINE. [Concomitant]
     Active Substance: DIPHENHYDRAMINE
     Dosage: UNK
     Dates: start: 20201104, end: 20201110
  32. METOPROLOL SUCCINATE. [Concomitant]
     Active Substance: METOPROLOL SUCCINATE
     Dosage: UNK
     Dates: start: 20200713
  33. K PHOS NEUTRAL [Concomitant]
     Active Substance: POTASSIUM PHOSPHATE, MONOBASIC\SODIUM PHOSPHATE, DIBASIC, ANHYDROUS\SODIUM PHOSPHATE, MONOBASIC, MONOHYDRATE
  34. LEVETIRACETAM. [Concomitant]
     Active Substance: LEVETIRACETAM
     Dosage: UNK
     Dates: start: 20201103
  35. DOCUSATE SODIUM;SENNOSIDE A+B [Concomitant]
     Active Substance: DOCUSATE SODIUM\SENNOSIDES A AND B
     Dosage: UNK
     Dates: start: 20201104
  36. DOCUSATE SODIUM. [Concomitant]
     Active Substance: DOCUSATE SODIUM
     Dosage: UNK
     Dates: start: 20201104
  37. FLUCONAZOLE. [Concomitant]
     Active Substance: FLUCONAZOLE
     Dosage: UNK
     Dates: start: 20201105
  38. POTASSIUM CHLORIDE. [Concomitant]
     Active Substance: POTASSIUM CHLORIDE
     Dosage: UNK
     Dates: start: 20201109

REACTIONS (2)
  - Cytokine release syndrome [Recovered/Resolved]
  - Immune effector cell-associated neurotoxicity syndrome [Recovered/Resolved]

NARRATIVE: CASE EVENT DATE: 20201108
